FAERS Safety Report 9410963 (Version 3)
Quarter: 2013Q3

REPORT INFORMATION
  Report Type: Report from Study
  Country: BR (occurrence: BR)
  Receive Date: 20130719
  Receipt Date: 20130827
  Transmission Date: 20140515
  Serious: Yes (Hospitalization, Other)
  Sender: FDA-Public Use
  Company Number: BR-ABBOTT-13P-020-1122158-00

PATIENT
  Age: 80 Year
  Sex: Female
  Weight: 39.6 kg

DRUGS (2)
  1. HUMIRA [Suspect]
     Indication: RHEUMATOID ARTHRITIS
     Route: 058
     Dates: start: 20130610
  2. DUOFLAM [Concomitant]
     Indication: PAIN
     Route: 058

REACTIONS (7)
  - Platelet count decreased [Unknown]
  - Anaemia [Unknown]
  - Urosepsis [Not Recovered/Not Resolved]
  - Malaise [Unknown]
  - Pyrexia [Not Recovered/Not Resolved]
  - Blood pressure increased [Not Recovered/Not Resolved]
  - Musculoskeletal stiffness [Not Recovered/Not Resolved]
